FAERS Safety Report 19230494 (Version 1)
Quarter: 2021Q2

REPORT INFORMATION
  Report Type: Spontaneous
  Country: NL (occurrence: NL)
  Receive Date: 20210506
  Receipt Date: 20210506
  Transmission Date: 20210717
  Serious: Yes (Hospitalization)
  Sender: FDA-Public Use
  Company Number: NL-TEVA-2021-NL-1907529

PATIENT
  Sex: Female
  Weight: 73 kg

DRUGS (2)
  1. CLOPIDOGREL TABLET   75MG / BRAND NAME NOT SPECIFIED [Suspect]
     Active Substance: CLOPIDOGREL BISULFATE
     Indication: PRODUCT USED FOR UNKNOWN INDICATION
     Dosage: YES LUCKILY I ONLY TOOK HALF A YEAR AND A HALF; 0.5 DF; THERAPY END DATE : ASKED BUT UNKNOWN
     Dates: start: 2020
  2. METOPROLOL TABLET MGA  25MG (SUCCINAAT) / SELOKEEN ZOC  25 TABLET MGA [Concomitant]
     Dosage: 30 MG NO SIDE EFFECTS FOR 25 YEARS; THERAPY START DATE; THERAPY END DATE : ASKED BUT UNKNOWN

REACTIONS (5)
  - Osteoarthritis [Not Recovered/Not Resolved]
  - Red blood cell sedimentation rate increased [Not Recovered/Not Resolved]
  - Acidosis [Not Recovered/Not Resolved]
  - Muscle spasms [Not Recovered/Not Resolved]
  - Dizziness [Not Recovered/Not Resolved]
